FAERS Safety Report 8829164 (Version 1)
Quarter: 2012Q4

REPORT INFORMATION
  Report Type: 
  Country: US (occurrence: US)
  Receive Date: 20121008
  Receipt Date: 20121008
  Transmission Date: 20130627
  Serious: Yes (Other)
  Sender: FDA-Public Use
  Company Number: CHPA2012US021267

PATIENT
  Age: 90 Year
  Sex: Female

DRUGS (1)
  1. PREVACID 24HR 15MG [Suspect]
     Indication: DYSPEPSIA
     Dosage: 15 mg, QD
     Route: 048

REACTIONS (4)
  - Back pain [Recovered/Resolved]
  - Drug ineffective for unapproved indication [Unknown]
  - Therapeutic response unexpected [Unknown]
  - Incorrect drug administration duration [Unknown]
